FAERS Safety Report 23686608 (Version 2)
Quarter: 2025Q3

REPORT INFORMATION
  Report Type: Spontaneous
  Country: US (occurrence: US)
  Receive Date: 20240329
  Receipt Date: 20250818
  Transmission Date: 20251021
  Serious: No
  Sender: EISAI
  Company Number: US-Eisai Medical Research-EC-2023-150033

PATIENT
  Age: 66 Year
  Sex: Female

DRUGS (4)
  1. LEQEMBI [Suspect]
     Active Substance: LECANEMAB-IRMB
     Indication: Dementia Alzheimer^s type
     Dates: start: 20230925, end: 2025
  2. LEQEMBI [Suspect]
     Active Substance: LECANEMAB-IRMB
     Dates: start: 202507, end: 202507
  3. DONEPEZIL [Concomitant]
     Active Substance: DONEPEZIL
  4. MEMANTINE [Concomitant]
     Active Substance: MEMANTINE

REACTIONS (3)
  - Chills [Recovered/Resolved]
  - Amyloid related imaging abnormality-microhaemorrhages and haemosiderin deposits [Unknown]
  - Nasopharyngitis [Unknown]

NARRATIVE: CASE EVENT DATE: 20230925
